FAERS Safety Report 13740838 (Version 1)
Quarter: 2017Q3

REPORT INFORMATION
  Report Type: Spontaneous
  Country: US (occurrence: US)
  Receive Date: 20170710
  Receipt Date: 20170710
  Transmission Date: 20171127
  Serious: Yes (Life-Threatening, Hospitalization, Disabling)
  Sender: FDA-Public Use
  Company Number: None

PATIENT
  Age: 51 Year
  Sex: Female
  Weight: 107.7 kg

DRUGS (1)
  1. VANCOMYCIN [Suspect]
     Active Substance: VANCOMYCIN
     Indication: PNEUMONIA BACTERIAL
     Dosage: ?          OTHER DOSE:MG;?
     Route: 042
     Dates: start: 20170704, end: 20170704

REACTIONS (3)
  - Blood creatinine increased [None]
  - No adverse event [None]
  - Drug level increased [None]

NARRATIVE: CASE EVENT DATE: 20170704
